FAERS Safety Report 11199403 (Version 3)
Quarter: 2016Q3

REPORT INFORMATION
  Report Type: Report from Study
  Country: CA (occurrence: CA)
  Receive Date: 20150618
  Receipt Date: 20160802
  Transmission Date: 20161109
  Serious: Yes (Hospitalization, Other)
  Sender: FDA-Public Use
  Company Number: CA-ABBVIE-15K-028-1401397-00

PATIENT
  Age: 58 Year
  Sex: Female

DRUGS (3)
  1. HUMIRA [Suspect]
     Active Substance: ADALIMUMAB
     Indication: CROHN^S DISEASE
     Route: 058
     Dates: start: 20150429
  2. HUMIRA [Suspect]
     Active Substance: ADALIMUMAB
     Route: 058
     Dates: start: 201606
  3. PREDNISONE. [Concomitant]
     Active Substance: PREDNISONE
     Indication: PRODUCT USED FOR UNKNOWN INDICATION
     Route: 048

REACTIONS (18)
  - Liver abscess [Not Recovered/Not Resolved]
  - Diarrhoea [Not Recovered/Not Resolved]
  - Injection site irritation [Recovered/Resolved]
  - Injection site erythema [Unknown]
  - Injection site pain [Unknown]
  - Haemoglobin abnormal [Unknown]
  - Haemorrhage [Unknown]
  - Injection site pain [Unknown]
  - Injection site irritation [Unknown]
  - Malaise [Not Recovered/Not Resolved]
  - Liver abscess [Not Recovered/Not Resolved]
  - Chills [Not Recovered/Not Resolved]
  - Pyrexia [Not Recovered/Not Resolved]
  - Gastrointestinal disorder [Recovered/Resolved]
  - Cough [Not Recovered/Not Resolved]
  - Enteritis [Unknown]
  - Injection site erythema [Recovered/Resolved]
  - Colonic fistula [Recovered/Resolved]

NARRATIVE: CASE EVENT DATE: 2015
